FAERS Safety Report 22065689 (Version 1)
Quarter: 2023Q1

REPORT INFORMATION
  Report Type: Spontaneous
  Country: US (occurrence: None)
  Receive Date: 20230303
  Receipt Date: 20230303
  Transmission Date: 20230418
  Serious: No
  Sender: FDA-Public Use
  Company Number: None

PATIENT
  Age: 42 Year
  Sex: Male
  Weight: 89.81 kg

DRUGS (1)
  1. BICILLIN [Suspect]
     Active Substance: PENICILLIN G BENZATHINE
     Indication: Syphilis
     Dosage: OTHER STRENGTH : 2.4 MILLION;?FREQUENCY : ONCE;?
     Route: 030
     Dates: start: 20230303, end: 20230303

REACTIONS (2)
  - Product administered at inappropriate site [None]
  - Feeling abnormal [None]

NARRATIVE: CASE EVENT DATE: 20230303
